FAERS Safety Report 9137132 (Version 1)
Quarter: 2013Q1

REPORT INFORMATION
  Report Type: Spontaneous
  Country: US (occurrence: US)
  Receive Date: 20130219
  Receipt Date: 20130219
  Transmission Date: 20140127
  Serious: No
  Sender: FDA-Public Use
  Company Number: US-BRISTOL-MYERS SQUIBB COMPANY-16807620

PATIENT
  Age: 61 Year
  Sex: Female
  Weight: 105.23 kg

DRUGS (10)
  1. ORENCIA [Suspect]
     Indication: RHEUMATOID ARTHRITIS
     Dosage: LAST INF:28MAY2012,RESTARTED:09JUL2012
     Route: 058
     Dates: start: 20111129
  2. CALCIUM [Concomitant]
  3. METHOTREXATE [Concomitant]
  4. PREDNISONE [Concomitant]
  5. SYNTHROID [Concomitant]
  6. TRAZODONE HCL [Concomitant]
  7. MULTIVITAMIN [Concomitant]
  8. VICODIN [Concomitant]
  9. ZESTRIL [Concomitant]
  10. ZOLOFT [Concomitant]

REACTIONS (1)
  - Infected skin ulcer [Unknown]
